FAERS Safety Report 9769288 (Version 1)
Quarter: 2013Q4

REPORT INFORMATION
  Report Type: Spontaneous
  Country: US (occurrence: None)
  Receive Date: 20131205
  Receipt Date: 20131205
  Transmission Date: 20140711
  Serious: Yes (Hospitalization)
  Sender: FDA-Public Use
  Company Number: GAM-339-13-US INITIAL

PATIENT
  Sex: Female

DRUGS (1)
  1. OCTAGAM [Suspect]
     Indication: STIFF PERSON SYNDROME

REACTIONS (2)
  - Tachycardia [None]
  - Syncope [None]
